FAERS Safety Report 16023872 (Version 1)
Quarter: 2019Q1

REPORT INFORMATION
  Report Type: Report from Study
  Country: US (occurrence: US)
  Receive Date: 20190301
  Receipt Date: 20190301
  Transmission Date: 20190418
  Serious: Yes (Other)
  Sender: FDA-Public Use
  Company Number: PHEH2019US008609

PATIENT
  Sex: Female

DRUGS (1)
  1. DUREZOL [Suspect]
     Active Substance: DIFLUPREDNATE
     Indication: EYE INFLAMMATION
     Route: 065

REACTIONS (1)
  - Blindness [Unknown]
